FAERS Safety Report 18642467 (Version 8)
Quarter: 2022Q4

REPORT INFORMATION
  Report Type: Other
  Country: US (occurrence: None)
  Receive Date: 20201221
  Receipt Date: 20221222
  Transmission Date: 20230113
  Serious: No
  Sender: FDA-Public Use
  Company Number: US-ROCHE-2734283

PATIENT
  Age: 61 Year
  Sex: Female
  Weight: 80.358 kg

DRUGS (30)
  1. OCREVUS [Suspect]
     Active Substance: OCRELIZUMAB
     Indication: Relapsing multiple sclerosis
     Dosage: 300 MG ON DAY 1 AND 15, THEN 600 MG ONCE IN 6 MONTHS?ON 27/NOV/2017, RECEIVED OCRELIZUMAB 300 MG?DAT
     Route: 042
     Dates: start: 20171113
  2. OCREVUS [Suspect]
     Active Substance: OCRELIZUMAB
     Indication: Relapsing-remitting multiple sclerosis
     Dosage: ON 05/NOV/2018 (600 MG), 24/APR/2019, 10/OCT/2019, 11/SEP/2019,
     Route: 042
     Dates: start: 20180515
  3. OCREVUS [Suspect]
     Active Substance: OCRELIZUMAB
     Route: 042
     Dates: start: 20200630
  4. OCREVUS [Suspect]
     Active Substance: OCRELIZUMAB
     Route: 042
     Dates: start: 20200925
  5. DULOXETINE [Suspect]
     Active Substance: DULOXETINE
     Indication: Pain
     Route: 065
  6. BENADRYL [Suspect]
     Active Substance: DIPHENHYDRAMINE HYDROCHLORIDE
     Indication: Premedication
     Route: 065
  7. SOLU-MEDROL [Suspect]
     Active Substance: METHYLPREDNISOLONE SODIUM SUCCINATE
     Indication: Premedication
     Route: 065
     Dates: start: 20171113
  8. PFIZER-BIONTECH COVID-19 VACCINE [Suspect]
     Active Substance: TOZINAMERAN
     Indication: Immunisation
     Route: 065
  9. PANTOPRAZOLE [Concomitant]
     Active Substance: PANTOPRAZOLE
     Indication: Hiatus hernia
     Route: 048
  10. PANTOPRAZOLE [Concomitant]
     Active Substance: PANTOPRAZOLE
     Indication: Gastrooesophageal reflux disease
  11. PREGABALIN [Concomitant]
     Active Substance: PREGABALIN
     Route: 048
  12. ROPINIROLE [Concomitant]
     Active Substance: ROPINIROLE
     Indication: Tremor
     Route: 048
  13. METFORMIN [Concomitant]
     Active Substance: METFORMIN HYDROCHLORIDE
     Indication: Type 2 diabetes mellitus
  14. VITAMIN D3 [Concomitant]
     Active Substance: CHOLECALCIFEROL
     Dosage: 125MG=10,000 ICU
     Route: 048
  15. VITAMIN B12 [Concomitant]
     Active Substance: CYANOCOBALAMIN
     Route: 048
  16. HERBALS\TURMERIC [Concomitant]
     Active Substance: HERBALS\TURMERIC
     Indication: Inflammation
     Route: 048
  17. HERBALS\TURMERIC [Concomitant]
     Active Substance: HERBALS\TURMERIC
     Dosage: TAKES 1-2 TABLETS PER DAY
     Route: 048
  18. VITAMIN C [Concomitant]
     Active Substance: ASCORBIC ACID
     Route: 048
  19. TYLENOL [Concomitant]
     Active Substance: ACETAMINOPHEN
  20. LEVOTHYROXINE [Concomitant]
     Active Substance: LEVOTHYROXINE
     Indication: Hypothyroidism
     Route: 048
  21. OMEPRAZOLE [Concomitant]
     Active Substance: OMEPRAZOLE
     Indication: Gastrooesophageal reflux disease
     Route: 048
  22. OMEPRAZOLE [Concomitant]
     Active Substance: OMEPRAZOLE
     Indication: Gastrooesophageal reflux disease
  23. DIPHENHYDRAMINE [Concomitant]
     Active Substance: DIPHENHYDRAMINE
     Indication: Hypersensitivity
     Dosage: TAKES 2 PILL AT NIGHT AND 1 DURING DAY AS NEEDED
     Route: 048
  24. OXYBUTYNIN [Concomitant]
     Active Substance: OXYBUTYNIN
     Indication: Hypertonic bladder
     Route: 048
  25. FLUTICASONE PROPIONATE [Concomitant]
     Active Substance: FLUTICASONE PROPIONATE
     Indication: Hypersensitivity
     Dosage: TAKES 1-2 SPRAYS PER NOSTRIL
     Route: 045
  26. AZELASTINE HYDROCHLORIDE [Concomitant]
     Active Substance: AZELASTINE HYDROCHLORIDE
     Indication: Hypersensitivity
     Dosage: TAKES 1-2 SPRAYS PER NOSTRIL
     Route: 045
  27. ZYLOPRIM [Concomitant]
     Active Substance: ALLOPURINOL
     Indication: Depression
     Route: 048
  28. CYANOCOBALAMIN\DEXPANTHENOL\NIACINAMIDE\PYRIDOXINE HYDROCHLORIDE\RIBOF [Concomitant]
     Active Substance: CYANOCOBALAMIN\DEXPANTHENOL\NIACINAMIDE\PYRIDOXINE HYDROCHLORIDE\RIBOFLAVIN 5^-PHOSPHATE SODIUM\THIA
     Dosage: HAS 1000MCG BIOTIN
     Route: 048
  29. APPLE CIDER VINEGAR [Concomitant]
     Active Substance: APPLE CIDER VINEGAR
     Route: 048
  30. ACETAMINOPHEN [Concomitant]
     Active Substance: ACETAMINOPHEN
     Indication: Migraine
     Route: 048

REACTIONS (34)
  - Influenza [Recovered/Resolved]
  - Thermoanaesthesia [Not Recovered/Not Resolved]
  - Fatigue [Recovered/Resolved]
  - Muscle spasms [Not Recovered/Not Resolved]
  - Blood glucose increased [Not Recovered/Not Resolved]
  - Body temperature abnormal [Recovered/Resolved]
  - Asthenia [Not Recovered/Not Resolved]
  - Insomnia [Not Recovered/Not Resolved]
  - Feeding disorder [Not Recovered/Not Resolved]
  - Nasopharyngitis [Not Recovered/Not Resolved]
  - Nausea [Not Recovered/Not Resolved]
  - Pain [Not Recovered/Not Resolved]
  - Sleep disorder [Not Recovered/Not Resolved]
  - Off label use [Unknown]
  - Asthenia [Not Recovered/Not Resolved]
  - Immunodeficiency [Not Recovered/Not Resolved]
  - Gait disturbance [Unknown]
  - Tremor [Recovered/Resolved]
  - Burning sensation [Unknown]
  - Depression [Unknown]
  - Somnolence [Unknown]
  - Pain in extremity [Recovered/Resolved]
  - Headache [Recovered/Resolved]
  - Muscle twitching [Unknown]
  - Haemoglobin increased [Not Recovered/Not Resolved]
  - Stress [Recovering/Resolving]
  - Abnormal weight gain [Recovered/Resolved]
  - Joint stiffness [Unknown]
  - General physical health deterioration [Unknown]
  - Urinary tract infection [Not Recovered/Not Resolved]
  - Concussion [Unknown]
  - Feeling abnormal [Not Recovered/Not Resolved]
  - Fall [Unknown]
  - COVID-19 [Unknown]

NARRATIVE: CASE EVENT DATE: 20180101
